FAERS Safety Report 6858527-9 (Version None)
Quarter: 2010Q3

REPORT INFORMATION
  Report Type: 
  Country: None (occurrence: None)
  Receive Date: 20100719
  Receipt Date: 20100204
  Transmission Date: 20110219
  Serious: No
  Sender: FDA-Public Use
  Company Number: US-PFIZER INC-2008009672

PATIENT
  Sex: Female
  Weight: 78.5 kg

DRUGS (10)
  1. CHANTIX [Suspect]
     Dosage: 1 MG, 2X/DAY
     Dates: start: 20080101, end: 20080129
  2. CHANTIX [Suspect]
     Dosage: UNK
     Dates: start: 20090101
  3. LIPITOR [Concomitant]
     Indication: BLOOD CHOLESTEROL INCREASED
  4. LISINOPRIL [Concomitant]
     Indication: BLOOD CHOLESTEROL INCREASED
  5. GLIPIZIDE [Concomitant]
     Indication: DIABETES MELLITUS
  6. WELLBUTRIN [Concomitant]
     Indication: ANXIETY
  7. XANAX [Concomitant]
     Indication: PANIC DISORDER
  8. MONTELUKAST SODIUM [Concomitant]
     Indication: HYPERSENSITIVITY
  9. AMBIEN [Concomitant]
     Indication: SLEEP DISORDER
  10. ACETYLSALICYLIC ACID [Concomitant]

REACTIONS (4)
  - DYSPNOEA [None]
  - MALAISE [None]
  - PRURITUS [None]
  - RASH GENERALISED [None]
